FAERS Safety Report 25364680 (Version 3)
Quarter: 2025Q2

REPORT INFORMATION
  Report Type: Spontaneous
  Country: IE (occurrence: IE)
  Receive Date: 20250527
  Receipt Date: 20250616
  Transmission Date: 20250717
  Serious: Yes (Other)
  Sender: MYLAN
  Company Number: IE-002147023-NVSC2025IE073591

PATIENT
  Age: 58 Year
  Sex: Female

DRUGS (16)
  1. ZOLEDRONIC ACID [Suspect]
     Active Substance: ZOLEDRONIC ACID
     Indication: PIK3CA-activated mutation
  2. ZOLEDRONIC ACID [Suspect]
     Active Substance: ZOLEDRONIC ACID
     Indication: Hormone receptor positive HER2 negative breast cancer
     Route: 065
  3. ZOLEDRONIC ACID [Suspect]
     Active Substance: ZOLEDRONIC ACID
     Indication: Bone cancer
     Route: 065
  4. ZOLEDRONIC ACID [Suspect]
     Active Substance: ZOLEDRONIC ACID
  5. LETROZOLE [Suspect]
     Active Substance: LETROZOLE
     Indication: Breast cancer metastatic
     Dosage: 2.5 MILLIGRAM, QD, FILM-COATED TABLET
     Dates: start: 2017, end: 2019
  6. LETROZOLE [Suspect]
     Active Substance: LETROZOLE
     Dosage: 2.5 MILLIGRAM, QD, FILM-COATED TABLET
     Route: 048
     Dates: start: 2017, end: 2019
  7. LETROZOLE [Suspect]
     Active Substance: LETROZOLE
     Dosage: 2.5 MILLIGRAM, QD, FILM-COATED TABLET
     Route: 048
     Dates: start: 2017, end: 2019
  8. LETROZOLE [Suspect]
     Active Substance: LETROZOLE
     Dosage: 2.5 MILLIGRAM, QD, FILM-COATED TABLET
     Dates: start: 2017, end: 2019
  9. FULVESTRANT [Suspect]
     Active Substance: FULVESTRANT
     Indication: Hormone receptor positive HER2 negative breast cancer
  10. FULVESTRANT [Suspect]
     Active Substance: FULVESTRANT
     Indication: Bone cancer
     Route: 065
  11. FULVESTRANT [Suspect]
     Active Substance: FULVESTRANT
     Indication: PIK3CA-activated mutation
     Route: 065
  12. FULVESTRANT [Suspect]
     Active Substance: FULVESTRANT
  13. RIBOCICLIB [Suspect]
     Active Substance: RIBOCICLIB
     Indication: Hormone receptor positive HER2 negative breast cancer
     Dosage: 600 MILLIGRAM, QD,
     Dates: start: 202304, end: 20250429
  14. RIBOCICLIB [Suspect]
     Active Substance: RIBOCICLIB
     Indication: Bone cancer
     Dosage: 600 MILLIGRAM, QD,
     Route: 048
     Dates: start: 202304, end: 20250429
  15. RIBOCICLIB [Suspect]
     Active Substance: RIBOCICLIB
     Indication: PIK3CA-activated mutation
     Dosage: 600 MILLIGRAM, QD,
     Route: 048
     Dates: start: 202304, end: 20250429
  16. RIBOCICLIB [Suspect]
     Active Substance: RIBOCICLIB
     Dosage: 600 MILLIGRAM, QD,
     Dates: start: 202304, end: 20250429

REACTIONS (2)
  - Hormone receptor positive HER2 negative breast cancer [Unknown]
  - Malignant neoplasm progression [Unknown]
